FAERS Safety Report 25919710 (Version 2)
Quarter: 2025Q4

REPORT INFORMATION
  Report Type: Spontaneous
  Country: EU (occurrence: EU)
  Receive Date: 20251014
  Receipt Date: 20251226
  Transmission Date: 20260118
  Serious: Yes (Hospitalization)
  Sender: NOVARTIS
  Company Number: EU-002147023-NVSC2025CZ155196

PATIENT
  Sex: Female

DRUGS (2)
  1. SECUKINUMAB [Suspect]
     Active Substance: SECUKINUMAB
     Indication: Psoriatic arthropathy
     Dosage: UNK
     Route: 065
     Dates: start: 202101, end: 202112
  2. SULFASALAZINE [Concomitant]
     Active Substance: SULFASALAZINE
     Indication: Symptomatic treatment
     Dosage: 3 G, QD
     Route: 065

REACTIONS (5)
  - Psoriatic arthropathy [Recovering/Resolving]
  - Synovitis [Recovering/Resolving]
  - Dactylitis [Recovering/Resolving]
  - Sacral pain [Recovering/Resolving]
  - C-reactive protein increased [Recovering/Resolving]

NARRATIVE: CASE EVENT DATE: 20211201
